FAERS Safety Report 8345997-2 (Version None)
Quarter: 2012Q2

REPORT INFORMATION
  Report Type: 
  Country: None (occurrence: None)
  Receive Date: 20120509
  Receipt Date: 20120507
  Transmission Date: 20120825
  Serious: No
  Sender: FDA-Public Use
  Company Number: US-PFIZER INC-2012111578

PATIENT
  Sex: Male
  Weight: 83.9 kg

DRUGS (3)
  1. SUTENT [Suspect]
     Indication: PANCREATIC CARCINOMA
     Dosage: 12.5 MG, 1X/DAY
     Route: 048
     Dates: start: 20120101
  2. SUTENT [Suspect]
     Indication: LUNG NEOPLASM MALIGNANT
  3. MORPHINE [Concomitant]
     Indication: PAIN
     Dosage: UNK

REACTIONS (5)
  - AGEUSIA [None]
  - HYPOAESTHESIA ORAL [None]
  - ASTHENIA [None]
  - DECREASED APPETITE [None]
  - BONE DENSITY DECREASED [None]
